FAERS Safety Report 9160613 (Version 1)
Quarter: 2013Q1

REPORT INFORMATION
  Report Type: Spontaneous
  Country: US (occurrence: US)
  Receive Date: 20130313
  Receipt Date: 20130313
  Transmission Date: 20140127
  Serious: Yes (Other)
  Sender: FDA-Public Use
  Company Number: US-ABBOTT-12P-163-0940811-00

PATIENT
  Age: 66 Year
  Sex: Female

DRUGS (1)
  1. DEPAKOTE [Suspect]
     Indication: CONVULSION

REACTIONS (1)
  - Hypersensitivity [Unknown]
